FAERS Safety Report 10284495 (Version 1)
Quarter: 2014Q3

REPORT INFORMATION
  Report Type: Spontaneous
  Country: US (occurrence: None)
  Receive Date: 20140703
  Receipt Date: 20140703
  Transmission Date: 20150326
  Serious: Yes (Hospitalization)
  Sender: FDA-Public Use
  Company Number: UNT-2014-002442

PATIENT
  Age: 61 Year
  Sex: Female
  Weight: 68.9 kg

DRUGS (3)
  1. TYVASO [Suspect]
     Active Substance: TREPROSTINIL
     Indication: COR PULMONALE CHRONIC
     Route: 055
     Dates: start: 20130531
  2. REVATIO (SILDENAFIL CITRATE) [Concomitant]
  3. WARFARIN SODIUM (WARFARIN SODIUM) [Concomitant]
     Active Substance: WARFARIN SODIUM

REACTIONS (1)
  - Wound infection [None]

NARRATIVE: CASE EVENT DATE: 20140503
